FAERS Safety Report 8037594-3 (Version None)
Quarter: 2012Q1

REPORT INFORMATION
  Report Type: 
  Country: None (occurrence: None)
  Receive Date: 20120111
  Receipt Date: 20120105
  Transmission Date: 20120608
  Serious: Yes (Other)
  Sender: FDA-Public Use
  Company Number: BR-ABBOTT-11P-020-0872806-00

PATIENT
  Sex: Female
  Weight: 16 kg

DRUGS (5)
  1. DEPAKENE [Suspect]
     Indication: CONVULSION
  2. CLUSIVOL [Concomitant]
     Indication: PRODUCT USED FOR UNKNOWN INDICATION
     Route: 048
  3. PHENOBARBITAL TAB [Concomitant]
     Indication: CONVULSION
     Route: 048
  4. DEPAKENE [Suspect]
     Indication: CEREBRAL PALSY
     Dosage: 16 ML PER DAY
     Route: 048
  5. TEGRETOL [Concomitant]
     Indication: CONVULSION
     Dosage: 5 ML DAILY
     Route: 048

REACTIONS (18)
  - INFLUENZA [None]
  - INSOMNIA [None]
  - AGITATION [None]
  - CYANOSIS [None]
  - BLOOD CHOLESTEROL INCREASED [None]
  - NERVOUSNESS [None]
  - FALL [None]
  - CONSTIPATION [None]
  - PSYCHIATRIC SYMPTOM [None]
  - HEAD INJURY [None]
  - MUSCLE SPASMS [None]
  - PALPITATIONS [None]
  - ANGER [None]
  - DRUG INEFFECTIVE [None]
  - HYPOTHYROIDISM [None]
  - FEAR [None]
  - CONVULSION [None]
  - AGGRESSION [None]
